FAERS Safety Report 10832670 (Version 1)
Quarter: 2015Q1

REPORT INFORMATION
  Report Type: Report from Study
  Country: US (occurrence: US)
  Receive Date: 20150219
  Receipt Date: 20150219
  Transmission Date: 20150721
  Serious: No
  Sender: FDA-Public Use
  Company Number: US-ABBVIE-14P-163-1196150-00

PATIENT
  Age: 36 Year
  Sex: Male

DRUGS (3)
  1. HUMIRA [Suspect]
     Active Substance: ADALIMUMAB
     Indication: COLITIS ULCERATIVE
     Dosage: SECOND LOADING DOSE
     Dates: start: 20131228, end: 20131228
  2. HUMIRA [Suspect]
     Active Substance: ADALIMUMAB
     Dates: end: 20140222
  3. HUMIRA [Suspect]
     Active Substance: ADALIMUMAB
     Indication: CROHN^S DISEASE
     Dates: start: 20131214

REACTIONS (8)
  - Lacrimation increased [Recovered/Resolved]
  - Skin exfoliation [Not Recovered/Not Resolved]
  - Rash macular [Not Recovered/Not Resolved]
  - Pain in extremity [Recovering/Resolving]
  - Eye swelling [Recovered/Resolved]
  - Diarrhoea [Recovered/Resolved]
  - Adverse drug reaction [Unknown]
  - Arthralgia [Unknown]

NARRATIVE: CASE EVENT DATE: 20131228
